FAERS Safety Report 24703129 (Version 1)
Quarter: 2024Q4

REPORT INFORMATION
  Report Type: Spontaneous
  Country: CA (occurrence: CA)
  Receive Date: 20241205
  Receipt Date: 20241205
  Transmission Date: 20250115
  Serious: Yes (Hospitalization, Other)
  Sender: PFIZER
  Company Number: CA-PFIZER INC-PV202400122878

PATIENT
  Age: 78 Year
  Sex: Male

DRUGS (13)
  1. ELREXFIO [Suspect]
     Active Substance: ELRANATAMAB-BCMM
     Dosage: 76 MG, WEEKLY  (DAY 1 OF WEEK 1)
     Route: 058
     Dates: start: 20240916
  2. ELREXFIO [Suspect]
     Active Substance: ELRANATAMAB-BCMM
     Dosage: 32 MG, INFUSION 2 (DAY 4 OF WEEK 1)
     Route: 058
     Dates: start: 20240919
  3. ELREXFIO [Suspect]
     Active Substance: ELRANATAMAB-BCMM
     Dosage: 76 MG, WEEKLY (DAY 8 DOSE IN WEEK 2)
     Route: 058
     Dates: start: 20240923
  4. ELREXFIO [Suspect]
     Active Substance: ELRANATAMAB-BCMM
     Dosage: 76 MG, WEEKLY
     Route: 058
     Dates: start: 20240930
  5. ELREXFIO [Suspect]
     Active Substance: ELRANATAMAB-BCMM
     Dosage: 76 MG, WEEKLY
     Route: 058
     Dates: start: 20241007
  6. ELREXFIO [Suspect]
     Active Substance: ELRANATAMAB-BCMM
     Dosage: UNK
     Route: 058
     Dates: start: 202410
  7. ELREXFIO [Suspect]
     Active Substance: ELRANATAMAB-BCMM
     Dosage: 76 MG, WEEKLY
     Route: 058
     Dates: start: 20241025
  8. ELREXFIO [Suspect]
     Active Substance: ELRANATAMAB-BCMM
     Dosage: 76 MG, WEEKLY
     Route: 058
     Dates: start: 20241031
  9. ELREXFIO [Suspect]
     Active Substance: ELRANATAMAB-BCMM
     Dosage: 76 MG, WEEKLY
     Route: 058
     Dates: start: 202411
  10. ELREXFIO [Suspect]
     Active Substance: ELRANATAMAB-BCMM
     Dosage: 76 MG, WEEKLY
     Route: 058
     Dates: start: 20241128
  11. TYLENOL [Concomitant]
     Active Substance: ACETAMINOPHEN
     Indication: Premedication
     Dosage: UNK
  12. BENADRYL [Concomitant]
     Active Substance: DIPHENHYDRAMINE HYDROCHLORIDE
     Indication: Premedication
     Dosage: UNK
  13. DEXAMETHASONE [Concomitant]
     Active Substance: DEXAMETHASONE
     Indication: Premedication
     Dosage: UNK

REACTIONS (11)
  - Haemoglobin decreased [Not Recovered/Not Resolved]
  - Asthenia [Not Recovered/Not Resolved]
  - Fall [Unknown]
  - Skin laceration [Unknown]
  - Pruritus [Unknown]
  - Aphonia [Not Recovered/Not Resolved]
  - Injection site erythema [Unknown]
  - Fatigue [Unknown]
  - Diarrhoea [Unknown]
  - Oedema peripheral [Unknown]
  - Injection site pruritus [Not Recovered/Not Resolved]

NARRATIVE: CASE EVENT DATE: 20240101
